FAERS Safety Report 7361027-3 (Version None)
Quarter: 2011Q1

REPORT INFORMATION
  Report Type: 
  Country: None (occurrence: None)
  Receive Date: 20110310
  Receipt Date: 20110223
  Transmission Date: 20110831
  Serious: Yes (Hospitalization, Other)
  Sender: FDA-Public Use
  Company Number: D1100919

PATIENT
  Age: 77 Year
  Sex: Female

DRUGS (12)
  1. ZINC [Concomitant]
  2. SPIRONOLACTONE [Concomitant]
  3. DIGOXIN [Concomitant]
  4. CALCIUM PLUS MAGNESIUM (MAGNESIUM, CALCIUM) [Concomitant]
  5. VITAMIN B COMPLEX TAB [Concomitant]
  6. DARVOCET-N (PROPOXYPHENE, PARACETAMOL) [Concomitant]
  7. BAYER ASPIRIN 9ACETYLSALICYLIC ACID) [Concomitant]
  8. LIPITOR [Concomitant]
  9. ACETAMINOPHEN [Concomitant]
  10. LASIX [Suspect]
     Indication: RENAL DISORDER
     Dosage: 1 IN 1 D, ORAL
     Route: 048
  11. JANTOVEN [Suspect]
     Indication: PRODUCT USED FOR UNKNOWN INDICATION
     Dosage: 1/2 TABLET, QD TUESDAY AND THURSDAY; ORAL
     Route: 048
     Dates: start: 20080601
  12. NEXIUM [Concomitant]

REACTIONS (25)
  - HEPATIC CYST [None]
  - DIVERTICULITIS [None]
  - NIGHT SWEATS [None]
  - PANCREATIC ATROPHY [None]
  - HAEMATEMESIS [None]
  - BREAST PAIN [None]
  - BLOOD PRESSURE DIASTOLIC DECREASED [None]
  - MITRAL VALVE INCOMPETENCE [None]
  - MYOCARDIAL INFARCTION [None]
  - INTERNATIONAL NORMALISED RATIO INCREASED [None]
  - SINUS TACHYCARDIA [None]
  - GLOMERULAR FILTRATION RATE DECREASED [None]
  - RENAL ISCHAEMIA [None]
  - PULMONARY OEDEMA [None]
  - CARDIAC FAILURE CONGESTIVE [None]
  - MUSCLE STRAIN [None]
  - WEIGHT DECREASED [None]
  - PANCREATIC CYST [None]
  - ATRIAL FIBRILLATION [None]
  - DYSPNOEA [None]
  - CORONARY ARTERY DISEASE [None]
  - RENAL FAILURE [None]
  - CONDITION AGGRAVATED [None]
  - CORONARY ARTERY OCCLUSION [None]
  - HAEMORRHOIDAL HAEMORRHAGE [None]
